FAERS Safety Report 8408641 (Version 3)
Quarter: 2012Q4

REPORT INFORMATION
  Report Type: 
  Country: GB (occurrence: GB)
  Receive Date: 20120216
  Receipt Date: 20120904
  Transmission Date: 20130627
  Serious: Yes (Death, Other)
  Sender: FDA-Public Use
  Company Number: GB-CELGENEUS-167-21880-12020478

PATIENT
  Age: 65 Year
  Sex: Female
  Weight: 49.1 kg

DRUGS (7)
  1. REVLIMID [Suspect]
     Indication: MULTIPLE MYELOMA
     Dosage: 10 Milligram
     Route: 048
     Dates: start: 20101006, end: 20110608
  2. SODIUM CLODRONATE [Concomitant]
     Indication: OSTEOPENIA
     Dosage: 1040 Milligram
     Route: 048
     Dates: start: 20030217, end: 20111102
  3. DEXAMETHASONE [Concomitant]
     Indication: MULTIPLE MYELOMA
     Route: 065
     Dates: start: 200806
  4. DEXTROMETHORPHAN [Concomitant]
     Indication: MULTIPLE MYELOMA
     Route: 065
     Dates: start: 200301
  5. GUAIFENESIN [Concomitant]
     Indication: MULTIPLE MYELOMA
     Route: 065
     Dates: start: 200301
  6. PHENYLEPHRINE [Concomitant]
     Indication: MULTIPLE MYELOMA
     Route: 065
     Dates: start: 200301
  7. VELCADE [Concomitant]
     Indication: MULTIPLE MYELOMA
     Route: 065
     Dates: start: 200806

REACTIONS (2)
  - Pancreatic carcinoma [Fatal]
  - Myelodysplastic syndrome [Recovered/Resolved]
